FAERS Safety Report 8031099-1 (Version None)
Quarter: 2012Q1

REPORT INFORMATION
  Report Type: 
  Country: None (occurrence: None)
  Receive Date: 20120109
  Receipt Date: 20120103
  Transmission Date: 20120608
  Serious: Yes (Other)
  Sender: FDA-Public Use
  Company Number: US-ELI_LILLY_AND_COMPANY-US201109002737

PATIENT
  Sex: Female

DRUGS (6)
  1. PREDNISONE TAB [Concomitant]
     Dosage: UNK, OTHER
     Route: 047
  2. COMBIGAN [Concomitant]
     Dosage: UNK, BID
     Route: 047
  3. DORZOLAMIDE [Concomitant]
     Dosage: UNK, BID
     Route: 047
  4. LATANOPROST [Concomitant]
     Dosage: UNK, EACH EVENING
     Route: 047
  5. HUMALOG [Suspect]
     Indication: TYPE 1 DIABETES MELLITUS
     Dosage: UNK, PRN
     Route: 058
     Dates: start: 20080101
  6. LANTUS [Concomitant]
     Dosage: 16 U, BID

REACTIONS (2)
  - BLINDNESS UNILATERAL [None]
  - GLAUCOMA [None]
